FAERS Safety Report 10149735 (Version 1)
Quarter: 2014Q2

REPORT INFORMATION
  Report Type: Spontaneous
  Country: JP (occurrence: None)
  Receive Date: 20140430
  Receipt Date: 20140430
  Transmission Date: 20141212
  Serious: Yes (Hospitalization)
  Sender: FDA-Public Use
  Company Number: 2014CP000056

PATIENT
  Age: 83 Year
  Sex: Female

DRUGS (4)
  1. ACELIO [Suspect]
     Indication: ANALGESIC THERAPY
     Route: 041
     Dates: start: 20140417
  2. SOLDEM 3A [Concomitant]
  3. PRIMPERAN [Concomitant]
  4. VITAMEDIN [Concomitant]

REACTIONS (4)
  - Nausea [None]
  - Dizziness [None]
  - Overdose [None]
  - Gait disturbance [None]
